FAERS Safety Report 4325846-X (Version None)
Quarter: 2004Q1

REPORT INFORMATION
  Report Type: 
  Country: None (occurrence: None)
  Receive Date: 20040323
  Receipt Date: 20040308
  Transmission Date: 20041129
  Serious: Yes (Other)
  Sender: FDA-Public Use
  Company Number: 04-063-0768-1

PATIENT
  Age: 67 Year
  Sex: Female
  Weight: 59 kg

DRUGS (3)
  1. DAUNORUBICIN, BEN VENUE LABS [Suspect]
     Indication: ACUTE MYELOID LEUKAEMIA
     Dosage: 45MG/M2 IV DAYS 1,3
     Route: 042
     Dates: start: 20040206
  2. . [Concomitant]
  3. REFER TO ATTACHMENT I (ELI LILLY # 0402100656). [Concomitant]

REACTIONS (4)
  - CONFUSIONAL STATE [None]
  - HYPOXIA [None]
  - PLEURAL EFFUSION [None]
  - TREMOR [None]
